FAERS Safety Report 8793482 (Version 3)
Quarter: 2013Q1

REPORT INFORMATION
  Report Type: Report from Study
  Country: GR (occurrence: GR)
  Receive Date: 20120918
  Receipt Date: 20130104
  Transmission Date: 20140127
  Serious: Yes (Life-Threatening, Hospitalization)
  Sender: FDA-Public Use
  Company Number: PHHO2012GR013384

PATIENT
  Age: 57 Year
  Sex: Male
  Weight: 78 kg

DRUGS (4)
  1. ACZ885 [Suspect]
     Indication: CARDIOVASCULAR EVENT PROPHYLAXIS
     Dosage: 150 MG, UNK
     Dates: start: 20120724
  2. ISCOVER [Concomitant]
     Indication: MYOCARDIAL INFARCTION
     Dosage: 75 MG, QD
     Dates: start: 20080601
  3. EXFORGE [Concomitant]
     Indication: HYPERTENSION
     Dosage: 1 DF (5/160 MG), QD
     Dates: start: 20070101
  4. CRESTOR [Concomitant]
     Indication: DYSLIPIDAEMIA
     Dosage: 10 MG, QD
     Dates: start: 20070101

REACTIONS (1)
  - Atrioventricular block complete [Recovered/Resolved]
